FAERS Safety Report 25341559 (Version 3)
Quarter: 2025Q3

REPORT INFORMATION
  Report Type: Spontaneous
  Country: US (occurrence: US)
  Receive Date: 20250521
  Receipt Date: 20250811
  Transmission Date: 20251020
  Serious: No
  Sender: GLAXOSMITHKLINE
  Company Number: US-GSK-US2025AMR057367

PATIENT

DRUGS (4)
  1. NUCALA [Suspect]
     Active Substance: MEPOLIZUMAB
     Indication: Dermatitis atopic
  2. NUCALA [Suspect]
     Active Substance: MEPOLIZUMAB
     Indication: Pulmonary eosinophilia
  3. NUCALA [Suspect]
     Active Substance: MEPOLIZUMAB
     Indication: Dermatophytosis of nail
  4. NUCALA [Suspect]
     Active Substance: MEPOLIZUMAB
     Indication: Dermatitis contact

REACTIONS (1)
  - Off label use [Unknown]
